FAERS Safety Report 25982448 (Version 2)
Quarter: 2025Q4

REPORT INFORMATION
  Report Type: Spontaneous
  Country: CN (occurrence: CN)
  Receive Date: 20251031
  Receipt Date: 20251104
  Transmission Date: 20260119
  Serious: Yes (Life-Threatening, Hospitalization)
  Sender: GE HEALTHCARE
  Company Number: None

PATIENT
  Age: 68 Year
  Sex: Male
  Weight: 65 kg

DRUGS (1)
  1. VISIPAQUE [Suspect]
     Active Substance: IODIXANOL
     Indication: Angiocardiogram
     Dosage: 90 ML, TOTAL
     Route: 013
     Dates: start: 20251021, end: 20251021

REACTIONS (2)
  - Anaphylactic shock [Recovering/Resolving]
  - Pruritus [Recovering/Resolving]

NARRATIVE: CASE EVENT DATE: 20251021
